FAERS Safety Report 4449392-8 (Version None)
Quarter: 2004Q3

REPORT INFORMATION
  Report Type: 
  Country: None (occurrence: None)
  Receive Date: 20040909
  Receipt Date: 20040823
  Transmission Date: 20050211
  Serious: Yes (Other)
  Sender: FDA-Public Use
  Company Number: B0343932A

PATIENT
  Sex: Female

DRUGS (2)
  1. VINORELBINE TARTRATE [Suspect]
     Indication: BREAST CANCER METASTATIC
     Dosage: 30 MG/M2/WEEKLY
  2. TRASTUZUMAB (TRASTUZUMAB) [Suspect]
     Indication: BREAST CANCER METASTATIC
     Dosage: SEE DOSAGE TEXT

REACTIONS (1)
  - CARDIAC DISORDER [None]
